FAERS Safety Report 9646007 (Version 2)
Quarter: 2013Q4

REPORT INFORMATION
  Report Type: Report from Study
  Country: BR (occurrence: BR)
  Receive Date: 20131025
  Receipt Date: 20131125
  Transmission Date: 20140711
  Serious: Yes (Hospitalization, Other)
  Sender: FDA-Public Use
  Company Number: PHHY2013BR120365

PATIENT
  Age: 76 Year
  Sex: Female

DRUGS (3)
  1. DIOVAN HCT [Suspect]
     Indication: BLOOD PRESSURE INCREASED
     Dosage: 2 DF (160 MG VALS, 12.5 MG HYDR), BID
     Route: 048
     Dates: start: 2007, end: 20131023
  2. LABIRIN [Concomitant]
     Indication: LABYRINTHITIS
     Dosage: 2 DF (16MG) DAILY
     Route: 048
  3. BROMAZEPAM [Concomitant]
     Indication: SLEEP DISORDER
     Dosage: 1 DF (6MG) DAILY
     Route: 048

REACTIONS (4)
  - Hypertensive cardiomegaly [Recovered/Resolved]
  - Chest pain [Recovered/Resolved]
  - Hypertension [Recovered/Resolved]
  - Headache [Recovered/Resolved]
